FAERS Safety Report 21732395 (Version 5)
Quarter: 2023Q4

REPORT INFORMATION
  Report Type: Other
  Country: US (occurrence: None)
  Receive Date: 20221215
  Receipt Date: 20231016
  Transmission Date: 20240110
  Serious: Yes (Hospitalization, Other)
  Sender: FDA-Public Use
  Company Number: US-ROCHE-3238038

PATIENT
  Age: 77 Year
  Sex: Male
  Weight: 97.156 kg

DRUGS (8)
  1. ESBRIET [Suspect]
     Active Substance: PIRFENIDONE
     Indication: Idiopathic pulmonary fibrosis
     Dosage: TAKE 1 TABLET BY MOUTH 3 TIMES A DAY
     Route: 048
     Dates: start: 2020
  2. ALBUTEROL SULFATE [Concomitant]
     Active Substance: ALBUTEROL SULFATE
  3. ELIQUIS [Concomitant]
     Active Substance: APIXABAN
  4. FUROSEMIDE [Concomitant]
     Active Substance: FUROSEMIDE
  5. MINERALS\VITAMINS [Concomitant]
     Active Substance: MINERALS\VITAMINS
  6. PRAVASTATIN [Concomitant]
     Active Substance: PRAVASTATIN
  7. PREDNISONE [Concomitant]
     Active Substance: PREDNISONE
  8. TYLENOL ARTHRITIS PAIN [Concomitant]
     Active Substance: ACETAMINOPHEN

REACTIONS (13)
  - Blindness [Unknown]
  - Pulmonary fibrosis [Unknown]
  - Dyspnoea [Unknown]
  - Fatigue [Unknown]
  - Genital lesion [Unknown]
  - Dyspnoea exertional [Unknown]
  - Chest discomfort [Unknown]
  - White blood cell count increased [Unknown]
  - Mean cell volume increased [Unknown]
  - Eosinophil count decreased [Unknown]
  - Vitamin B12 increased [Unknown]
  - Basophil count decreased [Unknown]
  - Red blood cell count decreased [Unknown]
